FAERS Safety Report 8048276-6 (Version None)
Quarter: 2011Q4

REPORT INFORMATION
  Report Type: 
  Country: None (occurrence: None)
  Receive Date: 20111209
  Receipt Date: 20110926
  Transmission Date: 20120403
  Serious: No
  Sender: FDA-Public Use
  Company Number: 2011SP045551

PATIENT
  Age: 58 Year
  Sex: Male

DRUGS (6)
  1. LISINOPRIL [Concomitant]
  2. CELEBREX [Concomitant]
  3. VICTRELIS [Suspect]
     Indication: HEPATITIS C
     Dosage: ; PO
     Route: 048
     Dates: start: 20110801
  4. PEGASYS [Suspect]
     Indication: PRODUCT USED FOR UNKNOWN INDICATION
  5. RIBAVIRIN [Suspect]
     Indication: PRODUCT USED FOR UNKNOWN INDICATION
  6. OPANA [Concomitant]

REACTIONS (2)
  - VOMITING [None]
  - NAUSEA [None]
